FAERS Safety Report 17560864 (Version 1)
Quarter: 2020Q1

REPORT INFORMATION
  Report Type: Report from Study
  Country: MX (occurrence: MX)
  Receive Date: 20200319
  Receipt Date: 20200319
  Transmission Date: 20200409
  Serious: Yes (Other)
  Sender: FDA-Public Use
  Company Number: NVSC2020MX070463

PATIENT
  Sex: Female
  Weight: 110 kg

DRUGS (3)
  1. ENTRESTO [Suspect]
     Active Substance: SACUBITRIL\VALSARTAN
     Dosage: 100 MG, BID
     Route: 048
     Dates: start: 201908
  2. ENTRESTO [Suspect]
     Active Substance: SACUBITRIL\VALSARTAN
     Indication: CARDIAC DISORDER
     Dosage: 50 MG, BID (1 AND HALF YEAR AGO)
     Route: 048
     Dates: start: 201908
  3. DILATREND [Concomitant]
     Active Substance: CARVEDILOL
     Indication: TACHYCARDIA
     Dosage: UNK, (STARTED YEAR AND HALF AGO)
     Route: 048

REACTIONS (7)
  - Product use in unapproved indication [Unknown]
  - Cataract [Not Recovered/Not Resolved]
  - Visual impairment [Not Recovered/Not Resolved]
  - Eye irritation [Not Recovered/Not Resolved]
  - Intraocular pressure increased [Recovered/Resolved]
  - Glaucoma [Not Recovered/Not Resolved]
  - Retinal vein occlusion [Recovered/Resolved]
